FAERS Safety Report 9900870 (Version 1)
Quarter: 2014Q1

REPORT INFORMATION
  Report Type: Report from Study
  Country: US (occurrence: US)
  Receive Date: 20140217
  Receipt Date: 20140217
  Transmission Date: 20141002
  Serious: No
  Sender: FDA-Public Use
  Company Number: US-ABBVIE-13P-163-1064338-00

PATIENT
  Sex: Male

DRUGS (2)
  1. SIMCOR [Suspect]
     Indication: PRODUCT USED FOR UNKNOWN INDICATION
  2. MIXTURE OF SYRTEC, NIACIN OTC 500MG AND SIMVASTATIN [Concomitant]
     Indication: PRODUCT USED FOR UNKNOWN INDICATION

REACTIONS (13)
  - Feeling abnormal [Unknown]
  - Fatigue [Unknown]
  - Fatigue [Unknown]
  - Unevaluable event [Unknown]
  - Weight decreased [Unknown]
  - Influenza [Unknown]
  - Pneumonia [Unknown]
  - Blood glucose increased [Unknown]
  - Myalgia [Unknown]
  - Condition aggravated [Unknown]
  - Erythema [Recovered/Resolved]
  - Paraesthesia [Recovered/Resolved]
  - Rash [Recovered/Resolved]
